FAERS Safety Report 6786891-8 (Version None)
Quarter: 2010Q2

REPORT INFORMATION
  Report Type: 
  Country: None (occurrence: None)
  Receive Date: 20100621
  Receipt Date: 20100610
  Transmission Date: 20101027
  Serious: Yes (Life-Threatening, Hospitalization)
  Sender: FDA-Public Use
  Company Number: GER/SPN/10/0013705

PATIENT
  Age: 68 Year
  Sex: Male

DRUGS (1)
  1. OMEPRAZOLE [Suspect]
     Indication: DRUG USE FOR UNKNOWN INDICATION
     Dosage: ORAL
     Route: 048
     Dates: start: 20080101

REACTIONS (11)
  - DIZZINESS [None]
  - ELECTROCARDIOGRAM ST SEGMENT ELEVATION [None]
  - ERYTHEMA [None]
  - HYPERHIDROSIS [None]
  - KOUNIS SYNDROME [None]
  - LOSS OF CONSCIOUSNESS [None]
  - PRURITUS [None]
  - RESPIRATORY ARREST [None]
  - SKIN TEST POSITIVE [None]
  - TROPONIN I INCREASED [None]
  - VENTRICULAR FIBRILLATION [None]
